FAERS Safety Report 7913929-4 (Version None)
Quarter: 2011Q4

REPORT INFORMATION
  Report Type: 
  Country: None (occurrence: None)
  Receive Date: 20111115
  Receipt Date: 20111110
  Transmission Date: 20120403
  Serious: Yes (Other)
  Sender: FDA-Public Use
  Company Number: US-PFIZER INC-2011275860

PATIENT
  Sex: Male

DRUGS (2)
  1. GENOTROPIN [Suspect]
     Dosage: 0.4 MG, UNK (7DAYS A WEEK)
     Route: 058
  2. CLONAZEPAM [Concomitant]
     Dosage: 2 MG, UNK

REACTIONS (3)
  - MUSCLE RUPTURE [None]
  - DEPRESSION [None]
  - ANXIETY [None]
